FAERS Safety Report 21045918 (Version 1)
Quarter: 2022Q3

REPORT INFORMATION
  Report Type: Other
  Country: US (occurrence: None)
  Receive Date: 20220706
  Receipt Date: 20220706
  Transmission Date: 20221027
  Serious: Yes (Other)
  Sender: FDA-Public Use
  Company Number: US-ROCHE-3130138

PATIENT
  Age: 58 Year
  Sex: Female

DRUGS (14)
  1. BEVACIZUMAB [Suspect]
     Active Substance: BEVACIZUMAB
     Indication: Ovarian epithelial cancer
     Dosage: IN MARCH 2016, SHE INITIATED BEVACIZUMAB (10 MG/KG) AND CYCLOPHOSPHAMIDE (50 MG) CHEMOTHERAPY BUT RE
     Route: 065
  2. BEVACIZUMAB [Suspect]
     Active Substance: BEVACIZUMAB
     Route: 065
  3. CYCLOPHOSPHAMIDE [Suspect]
     Active Substance: CYCLOPHOSPHAMIDE
     Indication: Ovarian epithelial cancer
     Dosage: IN MARCH 2016, SHE INITIATED BEVACIZUMAB (10 MG/KG) AND CYCLOPHOSPHAMIDE (50 MG) CHEMOTHERAPY BUT RE
     Route: 065
  4. CYCLOPHOSPHAMIDE [Suspect]
     Active Substance: CYCLOPHOSPHAMIDE
     Dosage: IN NOVEMBER 2015, THE PATIENT^S CA-125 INCREASED TO 38 U/ ML AND SHE COMMENCED WITH ORAL CYCLOPHOSPH
     Route: 048
  5. PACLITAXEL [Suspect]
     Active Substance: PACLITAXEL
     Indication: Ovarian epithelial cancer
     Dosage: THE PATIENT COMPLETED SIX CYCLES OF PACLITAXEL (80 MG/M2) AND BEVACIZUMAB (10 MG/KG) IN DECEMBER 201
     Route: 065
  6. PACLITAXEL [Suspect]
     Active Substance: PACLITAXEL
     Route: 065
  7. CISPLATIN [Concomitant]
     Active Substance: CISPLATIN
     Route: 033
  8. CARBOPLATIN [Concomitant]
     Active Substance: CARBOPLATIN
     Dosage: THE PATIENT UNDERWENT DEBULKING SURGERY AND COMPLETED SIX CYCLES OF CARBOPLATIN [AREA UNDER THE CURV
     Route: 065
  9. CARBOPLATIN [Concomitant]
     Active Substance: CARBOPLATIN
     Dosage: THE PATIENT WAS TREATED AGAIN WITH CARBOPLATIN AND LIPOSOMAL DOXORUBICIN CHEMOTHERAPY BUT IN JANUARY
     Route: 065
  10. DOXORUBICIN [Concomitant]
     Active Substance: DOXORUBICIN
     Dosage: THE PATIENT UNDERWENT DEBULKING SURGERY AND COMPLETED SIX CYCLES OF CARBOPLATIN [AREA UNDER THE CURV
     Route: 065
  11. DOXORUBICIN [Concomitant]
     Active Substance: DOXORUBICIN
     Dosage: THE PATIENT WAS TREATED AGAIN WITH CARBOPLATIN AND LIPOSOMAL DOXORUBICIN CHEMOTHERAPY BUT IN JANUARY
     Route: 065
  12. NIRAPARIB [Concomitant]
     Active Substance: NIRAPARIB
     Dosage: SUBSEQUENTLY, THE PATIENT COMPLETED TWO CYCLES OF NIRAPARIB (300 MG/DAY) BUT PROGRESSED ON THERAPY.
     Route: 065
  13. PEMBROLIZUMAB [Concomitant]
     Active Substance: PEMBROLIZUMAB
     Dosage: IN MARCH 2017, THE PATIENT EXHIBITED DISEASE PROGRESSION AND WAS TREATED WITH INTRAVENOUS PEMBROLIZU
     Route: 042
  14. GEMCITABINE [Concomitant]
     Active Substance: GEMCITABINE
     Route: 065

REACTIONS (1)
  - Disease progression [Unknown]
